FAERS Safety Report 24991861 (Version 3)
Quarter: 2025Q1

REPORT INFORMATION
  Report Type: Spontaneous
  Country: CA (occurrence: CA)
  Receive Date: 20250220
  Receipt Date: 20250306
  Transmission Date: 20250408
  Serious: Yes (Hospitalization, Other)
  Sender: BIOMARIN
  Company Number: CA-SA-2025SA043470

PATIENT

DRUGS (1)
  1. LARONIDASE [Suspect]
     Active Substance: LARONIDASE
     Indication: Mucopolysaccharidosis I
     Dosage: 17.4 MG, QW
     Route: 042
     Dates: start: 20081129, end: 20250123

REACTIONS (10)
  - Hypervolaemia [Not Recovered/Not Resolved]
  - Cardiac failure [Unknown]
  - Acute respiratory failure [Unknown]
  - Poor venous access [Unknown]
  - Lung disorder [Unknown]
  - Dyspnoea [Unknown]
  - Condition aggravated [Unknown]
  - Cardiac disorder [Unknown]
  - Bradycardia [Unknown]
  - Condition aggravated [Unknown]

NARRATIVE: CASE EVENT DATE: 20250205
